FAERS Safety Report 7518979-8 (Version None)
Quarter: 2011Q2

REPORT INFORMATION
  Report Type: 
  Country: None (occurrence: None)
  Receive Date: 20110602
  Receipt Date: 20110524
  Transmission Date: 20111010
  Serious: Yes (Other)
  Sender: FDA-Public Use
  Company Number: FR-ASTRAZENECA-2011SE33034

PATIENT
  Age: 57 Year
  Sex: Female

DRUGS (4)
  1. LEVOTHYROXINE SODIUM [Concomitant]
  2. TEGRETOL [Concomitant]
     Indication: EPILEPSY
  3. QUETIAPINE [Suspect]
     Route: 048
     Dates: start: 20110301
  4. PHENOBARBITAL TAB [Concomitant]
     Indication: EPILEPSY

REACTIONS (1)
  - NEUTROPENIA [None]
